FAERS Safety Report 5610382-0 (Version None)
Quarter: 2008Q1

REPORT INFORMATION
  Report Type: 
  Country: None (occurrence: None)
  Receive Date: 20080128
  Receipt Date: 20080122
  Transmission Date: 20080703
  Serious: Yes (Hospitalization)
  Sender: FDA-Public Use
  Company Number: 2007BI025372

PATIENT
  Age: 41 Year
  Sex: Female

DRUGS (1)
  1. AVONEX [Suspect]
     Indication: MULTIPLE SCLEROSIS
     Dosage: 30 UG; QW; IM
     Route: 030
     Dates: start: 20070314, end: 20070701

REACTIONS (5)
  - BASEDOW'S DISEASE [None]
  - COUGH [None]
  - GOITRE [None]
  - HYPOTHYROIDISM [None]
  - RETCHING [None]
